FAERS Safety Report 6237597-5 (Version None)
Quarter: 2009Q2

REPORT INFORMATION
  Report Type: 
  Country: None (occurrence: None)
  Receive Date: 20090619
  Receipt Date: 20090612
  Transmission Date: 20091009
  Serious: Yes (Hospitalization, Disabling)
  Sender: FDA-Public Use
  Company Number: US-MERCK-0807USA01650

PATIENT
  Age: 53 Year
  Sex: Female

DRUGS (3)
  1. FOSAMAX [Suspect]
     Indication: OSTEOPOROSIS
     Route: 048
     Dates: start: 20010101, end: 20020301
  2. BONIVA [Suspect]
     Indication: OSTEOPOROSIS
     Route: 065
     Dates: start: 20060901, end: 20070601
  3. HORMONES (UNSPECIFIED) [Concomitant]
     Route: 065
     Dates: start: 19980101

REACTIONS (15)
  - ANXIETY [None]
  - ASTHENIA [None]
  - BONE DENSITY DECREASED [None]
  - DEPRESSION [None]
  - HERPES ZOSTER [None]
  - IMPAIRED HEALING [None]
  - JAW DISORDER [None]
  - LOW TURNOVER OSTEOPATHY [None]
  - MIGRAINE [None]
  - OSTEONECROSIS [None]
  - PAIN IN JAW [None]
  - RESORPTION BONE INCREASED [None]
  - SOMNOLENCE [None]
  - TEMPOROMANDIBULAR JOINT SYNDROME [None]
  - TOOTH ABSCESS [None]
